FAERS Safety Report 5265118-2 (Version None)
Quarter: 2007Q1

REPORT INFORMATION
  Report Type: 
  Country: None (occurrence: None)
  Receive Date: 20070314
  Receipt Date: 20070312
  Transmission Date: 20070707
  Serious: Yes (Death, Life-Threatening, Hospitalization, Disabling, Other)
  Sender: FDA-Public Use
  Company Number: US-JNJFOC-20070302547

PATIENT
  Age: 81 Year
  Sex: Female
  Weight: 81.65 kg

DRUGS (2)
  1. NESERITIDE [Suspect]
     Indication: RENAL DISORDER
     Route: 042
  2. NESERITIDE [Suspect]
     Indication: PROPHYLAXIS
     Route: 042

REACTIONS (5)
  - BACTERAEMIA [None]
  - DYSKINESIA [None]
  - PERIPHERAL COLDNESS [None]
  - RENAL FAILURE [None]
  - SKIN DISCOLOURATION [None]
